FAERS Safety Report 23710235 (Version 4)
Quarter: 2024Q2

REPORT INFORMATION
  Report Type: Spontaneous
  Country: CA (occurrence: CA)
  Receive Date: 20240405
  Receipt Date: 20240629
  Transmission Date: 20240716
  Serious: Yes (Other)
  Sender: FDA-Public Use
  Company Number: CA-CELLTRION INC.-2023CA007208

PATIENT

DRUGS (13)
  1. INFLECTRA [Suspect]
     Active Substance: INFLIXIMAB-DYYB
     Indication: Crohn^s disease
     Dosage: 1 DF, W0 AT HOSPITAL, DOSE UNSURE
     Route: 042
     Dates: start: 20230315, end: 20230315
  2. INFLECTRA [Suspect]
     Active Substance: INFLIXIMAB-DYYB
     Dosage: 5MG/KG (335 MG) INDUCTION W2,6 THEN MAINTENANCE Q8 WEEKS
     Route: 042
     Dates: start: 20230331, end: 20240509
  3. INFLECTRA [Suspect]
     Active Substance: INFLIXIMAB-DYYB
     Dosage: 5 MG/KG INDUCTION W2,6 THEN MAINTENANCE Q8 WEEKS
     Route: 042
     Dates: start: 20230428
  4. INFLECTRA [Suspect]
     Active Substance: INFLIXIMAB-DYYB
     Dosage: 350 MG (5MG/KG), 16 WEEKS AFTER LAST TREATMENT (PRESCRIBED TREATMENTS ARE EVERY 8 WEEKS)
     Route: 042
     Dates: start: 20230818
  5. INFLECTRA [Suspect]
     Active Substance: INFLIXIMAB-DYYB
     Dosage: 5 MG/KG, INDUCTION W2,6 THEN MAINTENANCE Q8 WEEKS
     Route: 042
     Dates: start: 20231013
  6. INFLECTRA [Suspect]
     Active Substance: INFLIXIMAB-DYYB
     Dosage: 345 MG (5MG/KG), 8 WEEKS
     Route: 042
     Dates: start: 20231207
  7. INFLECTRA [Suspect]
     Active Substance: INFLIXIMAB-DYYB
     Dosage: 5 MG/KG, INDUCTION W2,6 THEN MAINTENANCE Q8 WEEKS(340MG AFTER 8 WEEKS AND 1 DAY)
     Route: 042
     Dates: start: 20240202
  8. INFLECTRA [Suspect]
     Active Substance: INFLIXIMAB-DYYB
     Dosage: 5MG/KG, INDUCTION W2,6 THEN MAINTENANCE Q8 WEEKS(340MG AFTER 7 WEEKS AND 6 DAY)
     Route: 042
     Dates: start: 20240328
  9. INFLECTRA [Suspect]
     Active Substance: INFLIXIMAB-DYYB
     Dosage: 5MG/KG, INDUCTION W2,6 THEN MAINTENANCE Q8 WEEKS (DOSAGE ADMINISTERED: 330 MG, AFTER 6 WEEKS)
     Route: 042
     Dates: start: 20240509
  10. INFLECTRA [Suspect]
     Active Substance: INFLIXIMAB-DYYB
     Dosage: 10 MG/KG, 6 WEEKS AND 1 DAY  AFTER (EVERY 4 WEEKS)
     Route: 042
     Dates: start: 20240621
  11. CALCIUM [Concomitant]
     Active Substance: CALCIUM
     Dosage: UNK
  12. PREDNISONE [Concomitant]
     Active Substance: PREDNISONE
     Dosage: UNK
  13. CHOLECALCIFEROL [Concomitant]
     Active Substance: CHOLECALCIFEROL
     Dosage: UNK

REACTIONS (10)
  - Uveitis [Recovered/Resolved]
  - Off label use [Unknown]
  - Inappropriate schedule of product administration [Unknown]
  - Feeling hot [Not Recovered/Not Resolved]
  - Condition aggravated [Recovering/Resolving]
  - Aphthous ulcer [Recovered/Resolved]
  - Anal fissure [Recovered/Resolved]
  - Arthralgia [Recovered/Resolved]
  - Abscess [Recovered/Resolved]
  - Drug level below therapeutic [Not Recovered/Not Resolved]

NARRATIVE: CASE EVENT DATE: 20230301
